FAERS Safety Report 6544909-1 (Version None)
Quarter: 2010Q1

REPORT INFORMATION
  Report Type: 
  Country: None (occurrence: None)
  Receive Date: 20100121
  Receipt Date: 20100114
  Transmission Date: 20100710
  Serious: Yes (Death)
  Sender: FDA-Public Use
  Company Number: US-JNJFOC-20091106629

PATIENT
  Sex: Female
  Weight: 57.61 kg

DRUGS (5)
  1. SANDOZ [Suspect]
     Indication: DRUG USE FOR UNKNOWN INDICATION
     Route: 062
  2. TETRAHYDROCANNABINOL [Concomitant]
     Route: 065
  3. TRAZODONE [Concomitant]
     Route: 065
  4. DIPHENHYDRAMINE [Concomitant]
     Route: 065
  5. GABAPENTIN [Concomitant]
     Route: 065

REACTIONS (4)
  - BREAKTHROUGH PAIN [None]
  - NARCOTIC INTOXICATION [None]
  - PRURITUS [None]
  - WRONG TECHNIQUE IN DRUG USAGE PROCESS [None]
